FAERS Safety Report 19450759 (Version 2)
Quarter: 2021Q3

REPORT INFORMATION
  Report Type: Spontaneous
  Country: US (occurrence: US)
  Receive Date: 20210622
  Receipt Date: 20210708
  Transmission Date: 20211014
  Serious: Yes (Other)
  Sender: FDA-Public Use
  Company Number: NVSC2021US133181

PATIENT
  Age: 83 Year
  Sex: Female
  Weight: 56.3 kg

DRUGS (1)
  1. TABRECTA [Suspect]
     Active Substance: CAPMATINIB
     Indication: LUNG CARCINOMA CELL TYPE UNSPECIFIED STAGE IV
     Dosage: 200 MG, BID
     Route: 048
     Dates: start: 20201214, end: 20210115

REACTIONS (7)
  - Limb injury [Unknown]
  - Abdominal distension [Unknown]
  - Vomiting [Unknown]
  - Postoperative ileus [Unknown]
  - Intestinal obstruction [Recovered/Resolved]
  - Abdominal pain [Recovered/Resolved]
  - Nausea [Unknown]

NARRATIVE: CASE EVENT DATE: 20210116
